FAERS Safety Report 5826979-9 (Version None)
Quarter: 2008Q3

REPORT INFORMATION
  Report Type: 
  Country: None (occurrence: None)
  Receive Date: 20080724
  Receipt Date: 20080714
  Transmission Date: 20090109
  Serious: Yes (Other)
  Sender: FDA-Public Use
  Company Number: SPV1-2008-01516

PATIENT
  Sex: Male

DRUGS (4)
  1. ELAPRASE [Suspect]
     Indication: MUCOPOLYSACCHARIDOSIS II
     Dosage: 0.5 MG/KG, 1X/2WKS, IV DRIP
     Route: 041
  2. HYDROCORTISONE [Concomitant]
  3. ACETAMINOPHEN [Concomitant]
  4. CLOROPROMIN (CHLORPROMAZINE HYDROCHLORIDE) [Concomitant]

REACTIONS (4)
  - DYSPNOEA [None]
  - EYELID OEDEMA [None]
  - INFUSION RELATED REACTION [None]
  - RASH [None]
